FAERS Safety Report 7189399-3 (Version None)
Quarter: 2010Q4

REPORT INFORMATION
  Report Type: 
  Country: None (occurrence: None)
  Receive Date: 20101222
  Receipt Date: 20100922
  Transmission Date: 20110411
  Serious: No
  Sender: FDA-Public Use
  Company Number: US-AMGEN-TCS429522

PATIENT

DRUGS (2)
  1. ENBREL [Suspect]
     Indication: RHEUMATOID ARTHRITIS
     Dosage: 25 MG, 2 TIMES/WK
     Route: 058
     Dates: start: 20100705, end: 20100820
  2. IMMUNOGLOBULINS [Concomitant]
     Indication: POLYMYOSITIS
     Dosage: UNK UNK, UNK
     Route: 042
     Dates: start: 20020101

REACTIONS (4)
  - EYE SWELLING [None]
  - HEADACHE [None]
  - PARANASAL SINUS HYPERSECRETION [None]
  - VOMITING [None]
